FAERS Safety Report 10877118 (Version 2)
Quarter: 2015Q1

REPORT INFORMATION
  Report Type: Spontaneous
  Country: MX (occurrence: MX)
  Receive Date: 20150302
  Receipt Date: 20150302
  Transmission Date: 20150721
  Serious: Yes (Other)
  Sender: FDA-Public Use
  Company Number: MX-JNJFOC-20150215728

PATIENT
  Age: 4 Year
  Sex: Male

DRUGS (1)
  1. CONCERTA [Suspect]
     Active Substance: METHYLPHENIDATE HYDROCHLORIDE
     Indication: ATTENTION DEFICIT/HYPERACTIVITY DISORDER
     Route: 048
     Dates: start: 201312

REACTIONS (9)
  - Growth retardation [Unknown]
  - Abnormal behaviour [Recovering/Resolving]
  - Drug administered to patient of inappropriate age [Unknown]
  - Tremor [Recovering/Resolving]
  - Decreased appetite [Unknown]
  - Somnolence [Recovering/Resolving]
  - Fear [Recovering/Resolving]
  - Panic disorder [Recovering/Resolving]
  - Nightmare [Unknown]

NARRATIVE: CASE EVENT DATE: 201412
